FAERS Safety Report 8793722 (Version 2)
Quarter: 2013Q1

REPORT INFORMATION
  Report Type: Report from Study
  Country: JP (occurrence: JP)
  Receive Date: 20120918
  Receipt Date: 20130220
  Transmission Date: 20140127
  Serious: Yes (Hospitalization, Other)
  Sender: FDA-Public Use
  Company Number: JP-009507513-2012SP033124

PATIENT
  Age: 62 Year
  Sex: Female
  Weight: 53 kg

DRUGS (17)
  1. PEGINTERFERON ALFA-2B [Suspect]
     Indication: HEPATITIS C
     Dosage: 1.5 ?G/KG, QW
     Route: 058
     Dates: start: 20120307, end: 20120517
  2. REBETOL [Suspect]
     Indication: HEPATITIS C
     Dosage: 600 MG, QD
     Route: 048
     Dates: start: 20120307, end: 20120320
  3. REBETOL [Suspect]
     Dosage: 400 MG, QD
     Route: 048
     Dates: start: 20120321, end: 20120417
  4. REBETOL [Suspect]
     Dosage: 200 MG, QD
     Route: 048
     Dates: start: 20120418, end: 20120425
  5. TELAVIC [Suspect]
     Indication: HEPATITIS C
     Dosage: 2250 MG, QD
     Route: 048
     Dates: start: 20120307, end: 20120411
  6. TELAVIC [Suspect]
     Dosage: 1500 MG, QD
     Route: 048
     Dates: start: 20120412, end: 20120416
  7. LOXONIN [Concomitant]
     Indication: PYREXIA
     Dosage: DOSE: 60 MG PER DAY AS NEEDED
     Route: 048
     Dates: start: 20120308, end: 20120313
  8. MYSLEE [Concomitant]
     Indication: INSOMNIA
     Dosage: DOSE: 5 MG PER DAY AS NEEDED
     Route: 048
     Dates: start: 20120311
  9. CALONAL [Concomitant]
     Indication: PYREXIA
     Dosage: DOSE: 400  MG PER DAY AS NEEDED
     Route: 048
     Dates: start: 20120314
  10. ZYRTEC [Concomitant]
     Indication: PRURITUS
     Dosage: 10 MG, QD
     Route: 048
     Dates: start: 20120319
  11. RINDERON (BETAMETHASONE) [Concomitant]
     Indication: PRURITUS
     Dosage: RINDERON LOTION
     Route: 061
     Dates: start: 20120322
  12. TAKEPRON [Concomitant]
     Indication: PRODUCT USED FOR UNKNOWN INDICATION
     Dosage: INDICATION : GASTRALGIA AND ANOREXIA
     Route: 048
     Dates: start: 20120417
  13. MUCOSTA [Concomitant]
     Indication: PRODUCT USED FOR UNKNOWN INDICATION
     Dosage: INDICATION : GASTRALGIA AND ANOREXIA
     Route: 048
     Dates: start: 20120417
  14. SP TROCHES [Concomitant]
     Indication: COUGH
     Dosage: 25 MG, QD
     Route: 048
     Dates: start: 20120502
  15. DEPAS [Concomitant]
     Indication: PRODUCT USED FOR UNKNOWN INDICATION
     Dosage: DOSE: 0.5 MG PER DAY AS NEEDED
     Route: 048
     Dates: start: 20120503
  16. MUCOSOLVAN [Concomitant]
     Indication: PRODUCT USED FOR UNKNOWN INDICATION
     Dosage: 45 MG, QD
     Route: 048
     Dates: start: 20120503
  17. DEQUALINIUM CHLORIDE [Concomitant]
     Dosage: 25 MG, QD
     Route: 048

REACTIONS (4)
  - Retinitis [Recovered/Resolved]
  - Retinitis [Not Recovered/Not Resolved]
  - Malaise [Recovered/Resolved]
  - Anaemia [Not Recovered/Not Resolved]
